FAERS Safety Report 7877452 (Version 4)
Quarter: 2013Q2

REPORT INFORMATION
  Report Type: Spontaneous
  Country: FR (occurrence: FR)
  Receive Date: 20110330
  Receipt Date: 20130418
  Transmission Date: 20140414
  Serious: Yes (Life-Threatening)
  Sender: FDA-Public Use
  Company Number: FR-SANOFI-AVENTIS-2011SA017471

PATIENT
  Age: 36 Year
  Sex: Female

DRUGS (22)
  1. LOVENOX [Suspect]
     Indication: THROMBOSIS PROPHYLAXIS
     Route: 058
     Dates: start: 20110210, end: 20110223
  2. CELOCURIN [Suspect]
     Indication: INDUCTION OF ANAESTHESIA
     Route: 042
     Dates: start: 20110210, end: 20110210
  3. TRACRIUM ^BURROUGHS WELLCOME^ [Suspect]
     Indication: ENDOTRACHEAL INTUBATION
     Route: 042
     Dates: start: 20110210
  4. TRACRIUM ^BURROUGHS WELLCOME^ [Suspect]
     Indication: ENDOTRACHEAL INTUBATION
     Route: 042
     Dates: end: 20110224
  5. ESOMEPRAZOLE [Suspect]
     Indication: GASTROOESOPHAGEAL REFLUX DISEASE
     Route: 042
     Dates: start: 20110210, end: 20110224
  6. PROPOFOL [Suspect]
     Indication: PAIN
     Route: 042
     Dates: start: 20110210
  7. PROPOFOL [Suspect]
     Indication: PAIN
     Route: 042
     Dates: start: 20110218, end: 20110220
  8. THIOPENTAL [Concomitant]
     Indication: INDUCTION OF ANAESTHESIA
     Dates: start: 20110210
  9. FENTANYL [Concomitant]
     Indication: INDUCTION OF ANAESTHESIA
     Route: 065
     Dates: start: 20110210
  10. KETAMINE [Concomitant]
     Indication: INDUCTION OF ANAESTHESIA
     Route: 051
     Dates: start: 20110210
  11. DEXAMETHASONE [Concomitant]
     Indication: INDUCTION OF ANAESTHESIA
     Route: 051
     Dates: start: 20110210
  12. HYPNOVEL [Concomitant]
     Route: 051
     Dates: start: 20110210
  13. METHYLPREDNISOLONE HEMISUCCINATE [Concomitant]
     Route: 065
     Dates: start: 20110211, end: 20110218
  14. SUFENTA [Concomitant]
     Dates: start: 20110210
  15. ROCEPHINE [Concomitant]
     Dates: start: 20110210, end: 20110218
  16. ROVAMYCINE [Concomitant]
     Dates: start: 20110210, end: 20110218
  17. TIBERAL [Concomitant]
     Dates: start: 20110211, end: 20110218
  18. SOLUMEDROL [Concomitant]
     Indication: PRODUCT USED FOR UNKNOWN INDICATION
     Route: 040
     Dates: start: 20110210, end: 20110211
  19. SOLUMEDROL [Concomitant]
     Indication: PRODUCT USED FOR UNKNOWN INDICATION
     Dates: start: 20110224
  20. CILASTATIN/IMIPENEM [Concomitant]
     Dates: start: 20110222, end: 20110302
  21. AMIKLIN [Concomitant]
     Dates: start: 20110222, end: 20110223
  22. ZYVOXID [Concomitant]
     Dates: start: 20110222, end: 20110224

REACTIONS (16)
  - Renal failure [Recovering/Resolving]
  - Rhabdomyolysis [Recovering/Resolving]
  - Bronchospasm [Recovered/Resolved with Sequelae]
  - Rash vesicular [Recovered/Resolved]
  - Hepatic enzyme increased [Recovering/Resolving]
  - Bradycardia [None]
  - Liver injury [None]
  - Lung infection [None]
  - Haemofiltration [None]
  - Epstein-Barr virus test positive [None]
  - Simplex virus test positive [None]
  - Anaemia [None]
  - Streptococcal infection [None]
  - Pseudomonas infection [None]
  - Neuropathy peripheral [None]
  - Drug reaction with eosinophilia and systemic symptoms [None]
